FAERS Safety Report 4562436-8 (Version None)
Quarter: 2005Q1

REPORT INFORMATION
  Report Type: 
  Country: None (occurrence: None)
  Receive Date: 20050121
  Receipt Date: 20050118
  Transmission Date: 20050727
  Serious: Yes (Other)
  Sender: FDA-Public Use
  Company Number: GBWYE333612JAN05

PATIENT
  Age: 41 Year
  Sex: Female

DRUGS (3)
  1. EFFEXOR XR [Suspect]
     Indication: DEPRESSION
     Dosage: 75 MG 1X PER 1 DAY
     Route: 048
     Dates: start: 20041118, end: 20050110
  2. MIRTAZAPINE [Concomitant]
  3. NORETHISTERONE (NORETHISTERONE) [Concomitant]

REACTIONS (4)
  - CONVULSION [None]
  - EYE ROLLING [None]
  - FEELING ABNORMAL [None]
  - MUSCLE CONTRACTIONS INVOLUNTARY [None]
